FAERS Safety Report 6204565-9 (Version None)
Quarter: 2009Q2

REPORT INFORMATION
  Report Type: 
  Country: None (occurrence: None)
  Receive Date: 20090527
  Receipt Date: 20090515
  Transmission Date: 20091009
  Serious: Yes (Hospitalization)
  Sender: FDA-Public Use
  Company Number: AU-PFIZER INC-2009206272

PATIENT
  Age: 17 Year

DRUGS (1)
  1. ZELDOX [Suspect]
     Indication: PSYCHOTIC DISORDER
     Dosage: 20 MG, 2X/DAY
     Route: 048
     Dates: start: 20090115, end: 20090117

REACTIONS (5)
  - DYSKINESIA [None]
  - EYE PAIN [None]
  - PSYCHOTIC DISORDER [None]
  - SWOLLEN TONGUE [None]
  - WEIGHT INCREASED [None]
